FAERS Safety Report 7927386-5 (Version None)
Quarter: 2011Q4

REPORT INFORMATION
  Report Type: 
  Country: None (occurrence: None)
  Receive Date: 20111118
  Receipt Date: 20111108
  Transmission Date: 20120403
  Serious: Yes (Hospitalization)
  Sender: FDA-Public Use
  Company Number: US-BAYER-201039327NA

PATIENT
  Age: 46 Year
  Sex: Female
  Weight: 82 kg

DRUGS (4)
  1. YAZ [Suspect]
     Indication: CONTRACEPTION
     Route: 048
     Dates: start: 20070918, end: 20090321
  2. YASMIN [Suspect]
     Indication: CONTRACEPTION
     Dosage: UNK
     Route: 048
     Dates: start: 20070918, end: 20090321
  3. MOTRIN [Concomitant]
     Dosage: 800 MG, QID
     Route: 048
  4. CEPHALEXIN [Concomitant]
     Dosage: 500 MG, UNK
     Dates: start: 20090119

REACTIONS (1)
  - PULMONARY EMBOLISM [None]
